FAERS Safety Report 8371050-8 (Version None)
Quarter: 2012Q2

REPORT INFORMATION
  Report Type: 
  Country: None (occurrence: None)
  Receive Date: 20120518
  Receipt Date: 20120508
  Transmission Date: 20120825
  Serious: Yes (Other)
  Sender: FDA-Public Use
  Company Number: BE-BRISTOL-MYERS SQUIBB COMPANY-16577769

PATIENT
  Age: 48 Year
  Sex: Female
  Weight: 99 kg

DRUGS (1)
  1. IPILIMUMAB [Suspect]
     Indication: METASTATIC MALIGNANT MELANOMA
     Dosage: TOTAL 4 ADMINISTRATION PLANNED.
     Route: 042
     Dates: start: 20100801

REACTIONS (1)
  - SARCOIDOSIS [None]
